FAERS Safety Report 5844389-5 (Version None)
Quarter: 2008Q3

REPORT INFORMATION
  Report Type: 
  Country: None (occurrence: None)
  Receive Date: 20080808
  Receipt Date: 20080724
  Transmission Date: 20090109
  Serious: Yes (Hospitalization)
  Sender: FDA-Public Use
  Company Number: 2008SP013300

PATIENT
  Age: 58 Year
  Sex: Female

DRUGS (2)
  1. REBETOL [Suspect]
     Indication: HEPATITIS C
     Dates: start: 20051216, end: 20080531
  2. PEGASYS [Suspect]
     Indication: HEPATITIS C
     Dates: start: 20051216, end: 20080531

REACTIONS (2)
  - ASCITES [None]
  - ESCHERICHIA URINARY TRACT INFECTION [None]
